FAERS Safety Report 9131197 (Version 2)
Quarter: 2013Q1

REPORT INFORMATION
  Report Type: Report from Study
  Country: JP (occurrence: JP)
  Receive Date: 20130301
  Receipt Date: 20130325
  Transmission Date: 20140127
  Serious: Yes (Hospitalization)
  Sender: FDA-Public Use
  Company Number: JP-PFIZER INC-2013064157

PATIENT
  Age: 42 Year
  Sex: Male
  Weight: 78.2 kg

DRUGS (18)
  1. IRINOTECAN HCL [Suspect]
     Indication: COLON CANCER
     Dosage: 360 MG, CYCLIC
     Dates: start: 20121005
  2. IRINOTECAN HCL [Suspect]
     Dosage: 200 MG, CYCLE 5
     Dates: start: 20130123
  3. FLUOROURACIL [Suspect]
     Indication: COLON CANCER
     Dosage: 800 MG, CYCLIC
     Route: 042
     Dates: start: 20121005
  4. FLUOROURACIL [Suspect]
     Dosage: 4800 MG, INFUSION, CYCLIC
     Route: 042
     Dates: start: 20121005
  5. FLUOROURACIL [Suspect]
     Dosage: 2400 MG, CYCLE 5
     Route: 042
     Dates: start: 20130123
  6. FOLINIC ACID [Suspect]
     Indication: COLON CANCER
     Dosage: 800 MG, CYCLIC
     Dates: start: 20121005
  7. FOLINIC ACID [Suspect]
     Dosage: 800 MG, CYCLE 5
     Dates: start: 20130123
  8. BLINDED THERAPY [Suspect]
     Indication: COLON CANCER
     Dosage: 702.4 MG
     Dates: start: 20121005
  9. BLINDED THERAPY [Suspect]
     Dosage: 499.2 MG, CYCLE 5
     Dates: start: 20130123
  10. LANSOPRAZOLE [Concomitant]
     Dosage: UNK
     Dates: start: 20111213
  11. AMLODIPINE [Concomitant]
     Dosage: UNK
     Dates: start: 20120911
  12. MICARDIS [Concomitant]
     Dosage: UNK
     Dates: start: 20121005
  13. RESTAMIN [Concomitant]
     Dosage: UNK
     Dates: start: 20121005
  14. DEXART [Concomitant]
     Dosage: UNK
     Dates: start: 20121005
  15. ALOXI [Concomitant]
     Dosage: UNK
     Dates: start: 20121005
  16. DEXAMETHASONE [Concomitant]
     Dosage: UNK
     Dates: start: 20121006
  17. CRAVIT [Concomitant]
     Dosage: UNK
     Dates: start: 20121226, end: 20130108
  18. CEFMETAZOLE [Concomitant]
     Dosage: UNK
     Dates: start: 20130109, end: 20130116

REACTIONS (1)
  - Cholecystitis [Recovered/Resolved]
